FAERS Safety Report 21384038 (Version 4)
Quarter: 2024Q2

REPORT INFORMATION
  Report Type: Other
  Country: NL (occurrence: NL)
  Receive Date: 20220928
  Receipt Date: 20240409
  Transmission Date: 20240715
  Serious: Yes (Other)
  Sender: FDA-Public Use
  Company Number: NL-TOLMAR, INC.-22NL036646

PATIENT
  Age: 74 Year
  Sex: Male

DRUGS (9)
  1. ELIGARD [Suspect]
     Active Substance: LEUPROLIDE ACETATE
     Indication: Prostate cancer
     Dosage: 45 MILLIGRAM, Q 6 MONTH
     Route: 058
     Dates: start: 20220315
  2. ELIGARD [Suspect]
     Active Substance: LEUPROLIDE ACETATE
     Dosage: 45 MILLIGRAM, Q 6 MONTH
     Route: 058
     Dates: start: 20160322
  3. ELIGARD [Suspect]
     Active Substance: LEUPROLIDE ACETATE
     Dosage: 45 MILLIGRAM, Q 6 MONTH
     Route: 058
     Dates: start: 20220915
  4. ELIGARD [Suspect]
     Active Substance: LEUPROLIDE ACETATE
     Dosage: 45 MILLIGRAM, Q 6 MONTH
     Route: 058
     Dates: start: 20230317
  5. ELIGARD [Suspect]
     Active Substance: LEUPROLIDE ACETATE
     Dosage: 45 MILLIGRAM, Q 6 MONTH
     Route: 058
     Dates: start: 20230913
  6. ELIGARD [Suspect]
     Active Substance: LEUPROLIDE ACETATE
     Dosage: 45 MILLIGRAM, Q 6 MONTH
     Route: 058
     Dates: start: 20240312
  7. ABIRATERONE [Suspect]
     Active Substance: ABIRATERONE
     Indication: Prostatic specific antigen increased
     Dosage: 500 MILLIGRAM, QD
     Dates: start: 20230605, end: 20230831
  8. PREDNISOLONE [Suspect]
     Active Substance: PREDNISOLONE
     Indication: Prostatic specific antigen increased
     Dosage: 5 MILLIGRAM, BID
     Dates: start: 20230605, end: 20230831
  9. OXYCODONE [Suspect]
     Active Substance: OXYCODONE\OXYCODONE HYDROCHLORIDE
     Indication: Pain
     Dosage: UNK

REACTIONS (8)
  - General physical health deterioration [Unknown]
  - Renal failure [Unknown]
  - Prostatic specific antigen increased [Not Recovered/Not Resolved]
  - Rash macular [Unknown]
  - Drug hypersensitivity [Unknown]
  - Pain [Unknown]
  - Pruritus [Unknown]
  - Blood urine present [Unknown]

NARRATIVE: CASE EVENT DATE: 20220808
